FAERS Safety Report 14163988 (Version 1)
Quarter: 2017Q4

REPORT INFORMATION
  Report Type: Spontaneous
  Country: US (occurrence: US)
  Receive Date: 20171107
  Receipt Date: 20171107
  Transmission Date: 20180321
  Serious: No
  Sender: FDA-Public Use
  Company Number: US-009507513-1710USA004758

PATIENT
  Age: 21 Year
  Sex: Female

DRUGS (1)
  1. NEXPLANON [Suspect]
     Active Substance: ETONOGESTREL
     Indication: CONTRACEPTION
     Dosage: 1 ROD EVERY 3 YEARS
     Route: 059
     Dates: start: 20170105

REACTIONS (7)
  - Dizziness [Unknown]
  - Depression [Unknown]
  - Menstruation irregular [Unknown]
  - Irritability [Unknown]
  - Weight decreased [Unknown]
  - Asthenia [Unknown]
  - Weight gain poor [Unknown]

NARRATIVE: CASE EVENT DATE: 20170112
